FAERS Safety Report 10405803 (Version 1)
Quarter: 2014Q3

REPORT INFORMATION
  Report Type: Spontaneous
  Country: US (occurrence: US)
  Receive Date: 20140825
  Receipt Date: 20140825
  Transmission Date: 20150326
  Serious: Yes (Other)
  Sender: FDA-Public Use
  Company Number: US-PFIZER INC-2014232394

PATIENT
  Age: 66 Year
  Sex: Female
  Weight: 61.22 kg

DRUGS (1)
  1. REVATIO [Suspect]
     Active Substance: SILDENAFIL CITRATE
     Indication: PULMONARY ARTERIAL HYPERTENSION
     Dosage: 20 MG, 1X/DAY
     Route: 048
     Dates: end: 20140807

REACTIONS (2)
  - Arthralgia [Recovering/Resolving]
  - Pain in extremity [Recovering/Resolving]
